FAERS Safety Report 8622265-2 (Version None)
Quarter: 2012Q3

REPORT INFORMATION
  Report Type: 
  Country: None (occurrence: None)
  Receive Date: 20120827
  Receipt Date: 20120818
  Transmission Date: 20120928
  Serious: Yes (Other)
  Sender: FDA-Public Use
  Company Number: BR-AMGEN-BRASP2012053003

PATIENT
  Age: 50 Year
  Sex: Female
  Weight: 93 kg

DRUGS (2)
  1. ENBREL [Suspect]
     Indication: RHEUMATOID ARTHRITIS
     Dosage: 50 MG, 1X/WEEK
     Route: 058
     Dates: start: 20100101, end: 20110601
  2. PREDNISONE TAB [Concomitant]
     Dosage: 5 MG, 1X/DAY
     Dates: start: 20020101

REACTIONS (1)
  - BREAST CANCER [None]
